FAERS Safety Report 25802833 (Version 1)
Quarter: 2025Q3

REPORT INFORMATION
  Report Type: Spontaneous
  Country: US (occurrence: US)
  Receive Date: 20250915
  Receipt Date: 20250915
  Transmission Date: 20251020
  Serious: Yes (Other)
  Sender: LEADING PHARMA
  Company Number: US-LEADINGPHARMA-US-2025LEALIT00168

PATIENT
  Age: 36 Year
  Sex: Female

DRUGS (2)
  1. LIDOCAINE [Suspect]
     Active Substance: LIDOCAINE
     Indication: Local anaesthesia
     Route: 065
  2. BENZOCAINE (BENZOCAINE) [Suspect]
     Active Substance: BENZOCAINE
     Indication: Local anaesthesia

REACTIONS (2)
  - Oxygen saturation decreased [Recovered/Resolved]
  - Methaemoglobinaemia [Recovered/Resolved]
